FAERS Safety Report 20354669 (Version 4)
Quarter: 2022Q1

REPORT INFORMATION
  Report Type: Report from Study
  Country: PT (occurrence: PT)
  Receive Date: 20220120
  Receipt Date: 20220224
  Transmission Date: 20220424
  Serious: Yes (Other)
  Sender: FDA-Public Use
  Company Number: PT-NOVARTISPH-NVSC2022PT010528

PATIENT
  Age: 83 Year
  Sex: Male
  Weight: 56 kg

DRUGS (5)
  1. CAPMATINIB [Suspect]
     Active Substance: CAPMATINIB
     Indication: Non-small cell lung cancer
     Dosage: 400 MG, BID
     Route: 048
     Dates: start: 20211221, end: 20220104
  2. CAPMATINIB [Suspect]
     Active Substance: CAPMATINIB
     Dosage: 100 MG, BID
     Route: 048
     Dates: start: 20220127
  3. CAPMATINIB [Suspect]
     Active Substance: CAPMATINIB
     Dosage: UNK
     Route: 065
  4. CAPMATINIB [Suspect]
     Active Substance: CAPMATINIB
     Dosage: 100 MG
     Route: 065
  5. CAPMATINIB [Suspect]
     Active Substance: CAPMATINIB
     Dosage: 200 MG
     Route: 065

REACTIONS (2)
  - Hypersensitivity [Unknown]
  - Rash maculo-papular [Unknown]

NARRATIVE: CASE EVENT DATE: 20220104
